FAERS Safety Report 4989880-9 (Version None)
Quarter: 2006Q2

REPORT INFORMATION
  Report Type: 
  Country: None (occurrence: None)
  Receive Date: 20060428
  Receipt Date: 20060418
  Transmission Date: 20061013
  Serious: Yes (Hospitalization)
  Sender: FDA-Public Use
  Company Number: 2006052838

PATIENT
  Age: 79 Year
  Sex: Female
  Weight: 61 kg

DRUGS (5)
  1. ZOLOFT [Suspect]
     Indication: DEPRESSION
     Dosage: 50 MG (50 MG, IN 1 D), ORAL
     Route: 048
     Dates: start: 20051116, end: 20060125
  2. IRBESARTAN [Concomitant]
  3. OMEPRAZOLE [Concomitant]
  4. ZOLPIDEM TARTRATE [Concomitant]
  5. DILTIAZEM HYDROCHLORIDE [Concomitant]

REACTIONS (3)
  - CEREBELLAR SYNDROME [None]
  - EXTRAPYRAMIDAL DISORDER [None]
  - NECK PAIN [None]
